FAERS Safety Report 6710535-4 (Version None)
Quarter: 2010Q2

REPORT INFORMATION
  Report Type: 
  Country: None (occurrence: None)
  Receive Date: 20100504
  Receipt Date: 20100426
  Transmission Date: 20101027
  Serious: Yes (Death)
  Sender: FDA-Public Use
  Company Number: US-GILEAD-2010-0028740

PATIENT
  Sex: Female

DRUGS (12)
  1. LETAIRIS [Suspect]
     Indication: COR PULMONALE CHRONIC
     Route: 048
     Dates: start: 20100213
  2. ADCIRCA [Concomitant]
  3. TORSEMIDE [Concomitant]
  4. QUINAPRIL [Concomitant]
  5. CADUET [Concomitant]
  6. DIGOXIN [Concomitant]
  7. ASPIRIN [Concomitant]
  8. HYDROXYUREA [Concomitant]
  9. ENABLEX [Concomitant]
  10. LANTUS [Concomitant]
  11. NOVOLOG [Concomitant]
  12. CITALOPRAM [Concomitant]

REACTIONS (1)
  - DEATH [None]
